FAERS Safety Report 5333594-2 (Version None)
Quarter: 2007Q2

REPORT INFORMATION
  Report Type: 
  Country: None (occurrence: None)
  Receive Date: 20070524
  Receipt Date: 20070517
  Transmission Date: 20071010
  Serious: Yes (Hospitalization)
  Sender: FDA-Public Use
  Company Number: US-ROCHE-498013

PATIENT
  Age: 48 Year
  Sex: Female

DRUGS (8)
  1. XENICAL [Suspect]
     Indication: DRUG USE FOR UNKNOWN INDICATION
     Route: 065
     Dates: start: 20061001
  2. MULTI-VITAMINS [Concomitant]
  3. NEXIUM [Concomitant]
  4. GLUCOPHAGE [Concomitant]
  5. AMARYL [Concomitant]
  6. KLONOPIN [Concomitant]
  7. ATENOLOL [Concomitant]
  8. UNSPECIFIED DRUG [Concomitant]
     Dosage: PATIENT TOOK ^LOTRIN^.

REACTIONS (3)
  - ANAL FISTULA [None]
  - FAECES DISCOLOURED [None]
  - STEATORRHOEA [None]
